FAERS Safety Report 5308778-X (Version None)
Quarter: 2007Q2

REPORT INFORMATION
  Report Type: 
  Country: None (occurrence: None)
  Receive Date: 20070426
  Receipt Date: 20070417
  Transmission Date: 20071010
  Serious: No
  Sender: FDA-Public Use
  Company Number: US-BAXTER-2007BH002585

PATIENT
  Age: 83 Year
  Sex: Female

DRUGS (2)
  1. BUMINATE 5% [Suspect]
     Indication: MYASTHENIA GRAVIS
     Route: 042
     Dates: start: 20070301, end: 20070301
  2. CALCIUM GLUCONATE [Concomitant]
     Indication: DRUG USE FOR UNKNOWN INDICATION
     Route: 042
     Dates: start: 20070301, end: 20070301

REACTIONS (1)
  - ANAPHYLACTIC REACTION [None]
